FAERS Safety Report 5799071-X (Version None)
Quarter: 2008Q3

REPORT INFORMATION
  Report Type: 
  Country: None (occurrence: None)
  Receive Date: 20080702
  Receipt Date: 20080630
  Transmission Date: 20090109
  Serious: Yes (Hospitalization)
  Sender: FDA-Public Use
  Company Number: US-BOEHRINGER INGELHEIM GMBH, GERMANY-2008-BP-10112BP

PATIENT
  Age: 15 Year
  Sex: Male

DRUGS (1)
  1. CATAPRES-TTS-1 [Suspect]
     Route: 061

REACTIONS (4)
  - ANXIETY DISORDER [None]
  - HEART TRANSPLANT [None]
  - NERVOUSNESS [None]
  - SLEEP DISORDER [None]
